FAERS Safety Report 24792969 (Version 1)
Quarter: 2024Q4

REPORT INFORMATION
  Report Type: Spontaneous
  Country: US (occurrence: US)
  Receive Date: 20241231
  Receipt Date: 20241231
  Transmission Date: 20250115
  Serious: No
  Sender: BIOVITRUM
  Company Number: US-BIOVITRUM-2024-US-016453

PATIENT
  Age: 7 Year
  Sex: Male

DRUGS (8)
  1. ANAKINRA [Suspect]
     Active Substance: ANAKINRA
     Indication: Inflammatory bowel disease
  2. RUXOLITINIB [Suspect]
     Active Substance: RUXOLITINIB
     Indication: Inflammatory bowel disease
  3. ADALIMUMAB [Suspect]
     Active Substance: ADALIMUMAB
     Indication: Inflammatory bowel disease
  4. INFLECTRA [Suspect]
     Active Substance: INFLIXIMAB-DYYB
     Indication: Inflammatory bowel disease
  5. METHOTREXATE [Suspect]
     Active Substance: METHOTREXATE
     Indication: Inflammatory bowel disease
  6. USTEKINUMAB [Suspect]
     Active Substance: USTEKINUMAB
     Indication: Inflammatory bowel disease
  7. TOFACITINIB [Suspect]
     Active Substance: TOFACITINIB
     Indication: Inflammatory bowel disease
  8. GOLIMUMAB [Suspect]
     Active Substance: GOLIMUMAB
     Indication: Inflammatory bowel disease

REACTIONS (9)
  - C-reactive protein increased [Unknown]
  - Red blood cell sedimentation rate increased [Unknown]
  - Interleukin level increased [Unknown]
  - Hypoalbuminaemia [Unknown]
  - Anaemia [Unknown]
  - Thrombocytosis [Unknown]
  - Growth disorder [Unknown]
  - Frequent bowel movements [Unknown]
  - Off label use [Unknown]
